FAERS Safety Report 7089754-6 (Version None)
Quarter: 2010Q4

REPORT INFORMATION
  Report Type: 
  Country: None (occurrence: None)
  Receive Date: 20101108
  Receipt Date: 20100806
  Transmission Date: 20110411
  Serious: No
  Sender: FDA-Public Use
  Company Number: US-ABBOTT-10P-163-0662699-00

PATIENT
  Sex: Female

DRUGS (2)
  1. TRICOR [Suspect]
     Indication: BLOOD CHOLESTEROL INCREASED
     Dates: start: 20100701, end: 20100701
  2. ATENOLOL [Concomitant]
     Indication: HYPERTENSION

REACTIONS (2)
  - ABDOMINAL PAIN UPPER [None]
  - CONSTIPATION [None]
